FAERS Safety Report 5448577-1 (Version None)
Quarter: 2007Q3

REPORT INFORMATION
  Report Type: 
  Country: None (occurrence: None)
  Receive Date: 20070911
  Receipt Date: 20070904
  Transmission Date: 20080115
  Serious: Yes (Disabling)
  Sender: FDA-Public Use
  Company Number: JP-BRISTOL-MYERS SQUIBB COMPANY-13902549

PATIENT
  Age: 17 Year
  Sex: Male

DRUGS (3)
  1. IFOMIDE [Suspect]
     Indication: BONE SARCOMA
     Route: 041
     Dates: start: 20070827, end: 20070829
  2. CARBOPLATIN [Concomitant]
     Indication: BONE SARCOMA
     Dates: start: 20070827, end: 20070829
  3. LASTET [Concomitant]
     Indication: BONE SARCOMA
     Dates: start: 20070827, end: 20070829

REACTIONS (1)
  - ENCEPHALOPATHY [None]
